FAERS Safety Report 24530162 (Version 2)
Quarter: 2024Q4

REPORT INFORMATION
  Report Type: Spontaneous
  Country: US (occurrence: US)
  Receive Date: 20241021
  Receipt Date: 20241105
  Transmission Date: 20250114
  Serious: No
  Sender: BRISTOL-MYERS SQUIBB COMPANY
  Company Number: US-BRISTOL-MYERS SQUIBB COMPANY-2024-165137

PATIENT
  Age: 55 Year
  Sex: Male

DRUGS (1)
  1. SPRYCEL [Suspect]
     Active Substance: DASATINIB
     Indication: Thrombocytopenia
     Route: 048
     Dates: start: 201710

REACTIONS (7)
  - Nausea [Unknown]
  - Asthenia [Unknown]
  - Somnolence [Unknown]
  - Vision blurred [Unknown]
  - Off label use [Unknown]
  - Lacrimation increased [Unknown]
  - Product container seal issue [Unknown]
